FAERS Safety Report 17519178 (Version 1)
Quarter: 2020Q1

REPORT INFORMATION
  Report Type: Spontaneous
  Country: US (occurrence: US)
  Receive Date: 20200228
  Receipt Date: 20200228
  Transmission Date: 20200409
  Serious: No
  Sender: FDA-Public Use
  Company Number: None

PATIENT
  Age: 74 Year
  Sex: Female
  Weight: 62.6 kg

DRUGS (12)
  1. BYSTOLIC [Concomitant]
     Active Substance: NEBIVOLOL HYDROCHLORIDE
  2. MIRALAX [Concomitant]
     Active Substance: POLYETHYLENE GLYCOL 3350
  3. EMGALITY [Suspect]
     Active Substance: GALCANEZUMAB-GNLM
     Indication: MIGRAINE PROPHYLAXIS
     Route: 058
     Dates: start: 20191021, end: 20191216
  4. COQ10 [Concomitant]
     Active Substance: UBIDECARENONE
  5. FLUTICASONE NASAL SPRAY [Concomitant]
     Active Substance: FLUTICASONE
  6. RALOZIFENE HCL [Concomitant]
  7. CRESTOR [Concomitant]
     Active Substance: ROSUVASTATIN CALCIUM
  8. XIIDRA [Concomitant]
     Active Substance: LIFITEGRAST
  9. ALLERGY LORATADINE [Concomitant]
  10. MUCINEX STOOL SOFTENER [Concomitant]
  11. PRUNES [Concomitant]
  12. AREDS 2 MULTI FOR VISION [Concomitant]

REACTIONS (16)
  - Myalgia [None]
  - Bedridden [None]
  - Weight decreased [None]
  - Pain in extremity [None]
  - Hypersomnia [None]
  - Hypoaesthesia [None]
  - Body temperature fluctuation [None]
  - Decreased appetite [None]
  - Impatience [None]
  - Migraine [None]
  - Pain [None]
  - Fatigue [None]
  - Stomatitis [None]
  - Neck pain [None]
  - Feeling abnormal [None]
  - Musculoskeletal pain [None]

NARRATIVE: CASE EVENT DATE: 20191225
